FAERS Safety Report 24459371 (Version 1)
Quarter: 2024Q4

REPORT INFORMATION
  Report Type: Report from Study
  Country: CL (occurrence: CL)
  Receive Date: 20241018
  Receipt Date: 20241018
  Transmission Date: 20250115
  Serious: No
  Sender: ROCHE
  Company Number: CL-ROCHE-3531095

PATIENT
  Age: 61 Year
  Sex: Male

DRUGS (4)
  1. MABTHERA [Suspect]
     Active Substance: RITUXIMAB
     Indication: Non-Hodgkin^s lymphoma
     Dosage: ON CYCLES 1 AND 2. FREQUENCY WAS NOT REPORTED
     Route: 058
     Dates: start: 20231128, end: 20240206
  2. IFOSFAMIDE [Concomitant]
     Active Substance: IFOSFAMIDE
  3. CARBOPLATIN [Concomitant]
     Active Substance: CARBOPLATIN
     Route: 065
     Dates: start: 20231128
  4. ETOPOSIDE [Concomitant]
     Active Substance: ETOPOSIDE
     Route: 065
     Dates: start: 20231128

REACTIONS (8)
  - Erythema [Unknown]
  - Abdominal wall disorder [Unknown]
  - Asthenia [Unknown]
  - Asthenia [Unknown]
  - Muscular weakness [Unknown]
  - Weight increased [Unknown]
  - Alopecia [Unknown]
  - Pain of skin [Unknown]
